FAERS Safety Report 6043348-X (Version None)
Quarter: 2009Q1

REPORT INFORMATION
  Report Type: 
  Country: None (occurrence: None)
  Receive Date: 20090115
  Receipt Date: 20090105
  Transmission Date: 20090719
  Serious: Yes (Hospitalization)
  Sender: FDA-Public Use
  Company Number: 230134K09USA

PATIENT
  Age: 35 Year
  Sex: Female
  Weight: 94 kg

DRUGS (19)
  1. REBIF [Suspect]
     Indication: MULTIPLE SCLEROSIS
     Dosage: 44 MCG, 3 IN 1 WEEKS, SUBCUTANEOUS
     Route: 058
     Dates: start: 20070301, end: 20070701
  2. REBIF [Suspect]
     Indication: MULTIPLE SCLEROSIS
     Dosage: 44 MCG, 3 IN 1 WEEKS, SUBCUTANEOUS
     Route: 058
     Dates: start: 20070801, end: 20070901
  3. METFORMIN HCL [Concomitant]
  4. STARLIX [Concomitant]
  5. ACIPHEX [Concomitant]
  6. PREDNISONE [Concomitant]
  7. SOLU-MEDROL [Concomitant]
  8. ESTRADIOL (ESTRADIOL /00045401/) [Concomitant]
  9. TOPAMAC (TOPIRAMATE) [Concomitant]
  10. TOPROL-XL [Concomitant]
  11. DURAGESIC PATCH (FENTANYL (00174601/) [Concomitant]
  12. MORPHINE SULFATE INJ [Concomitant]
  13. AMBIEN [Concomitant]
  14. CYMBALTA [Concomitant]
  15. REMERON [Concomitant]
  16. SEROQUEL [Concomitant]
  17. KLONOPIN [Concomitant]
  18. HYDROCHLOROTHIAZIDE [Concomitant]
  19. POTASSIUM (POTASSIUM /00031401/) [Concomitant]

REACTIONS (2)
  - CENTRAL NERVOUS SYSTEM LESION [None]
  - GASTROENTERITIS SALMONELLA [None]
